FAERS Safety Report 16286229 (Version 3)
Quarter: 2019Q4

REPORT INFORMATION
  Report Type: Spontaneous
  Country: US (occurrence: US)
  Receive Date: 20190508
  Receipt Date: 20191112
  Transmission Date: 20200122
  Serious: No
  Sender: FDA-Public Use
  Company Number: US-PFIZER INC-2018100208

PATIENT
  Age: 4 Year
  Sex: Male

DRUGS (1)
  1. GENOTROPIN [Suspect]
     Active Substance: SOMATROPIN
     Dosage: 0.35 MG, DAILY
     Route: 058

REACTIONS (4)
  - Product dose omission [Unknown]
  - Device issue [Unknown]
  - Product prescribing error [Unknown]
  - Insulin-like growth factor decreased [Unknown]
